FAERS Safety Report 4882306-5 (Version None)
Quarter: 2006Q1

REPORT INFORMATION
  Report Type: 
  Country: None (occurrence: None)
  Receive Date: 20060117
  Receipt Date: 20051104
  Transmission Date: 20060701
  Serious: Yes (Death)
  Sender: FDA-Public Use
  Company Number: JP-BOEHRINGER INGELHEIM PHARMACEUTICALS, INC.-2005-BP-19260NB

PATIENT
  Sex: Male

DRUGS (8)
  1. SPIRIVA [Suspect]
     Indication: EMPHYSEMA
     Route: 055
     Dates: start: 20051024
  2. SUNRYTHM [Suspect]
     Indication: ARRHYTHMIA SUPRAVENTRICULAR
     Route: 048
     Dates: start: 20050521
  3. DIGOSIN [Suspect]
     Indication: ARRHYTHMIA SUPRAVENTRICULAR
     Route: 048
     Dates: start: 20050521
  4. LOXONIN [Suspect]
     Indication: MUSCULOSKELETAL PAIN
     Route: 048
     Dates: start: 20050720
  5. DAI-BOFU-TO [Suspect]
     Indication: MUSCULOSKELETAL PAIN
     Route: 048
     Dates: start: 20050609
  6. MUCOSTA [Suspect]
     Indication: GASTRITIS
     Route: 048
     Dates: start: 20050705
  7. MUCOSOLVAN [Suspect]
     Indication: EMPHYSEMA
     Route: 048
     Dates: start: 20050609
  8. HOKUNALIN:  TAPE (TULOBUTEROL)) [Suspect]
     Indication: EMPHYSEMA
     Route: 062
     Dates: start: 20051011

REACTIONS (1)
  - MYOCARDIAL INFARCTION [None]
